FAERS Safety Report 15465535 (Version 4)
Quarter: 2019Q1

REPORT INFORMATION
  Report Type: Spontaneous
  Country: US (occurrence: US)
  Receive Date: 20181004
  Receipt Date: 20190330
  Transmission Date: 20190417
  Serious: Yes (Other)
  Sender: FDA-Public Use
  Company Number: US-PRINSTON PHARMACEUTICAL INC.-2018PRN01441

PATIENT
  Age: 69 Year
  Sex: Female
  Weight: 90.7 kg

DRUGS (6)
  1. VALSARTAN AND HYDROCHLOROTHIAZIDE [Suspect]
     Active Substance: HYDROCHLOROTHIAZIDE\VALSARTAN
     Indication: HYPERTENSION
     Dosage: 80/12.5 MG ONCE DAILY
     Route: 048
     Dates: start: 20100407, end: 20180529
  2. ATORVASTATIN [Concomitant]
     Active Substance: ATORVASTATIN
     Dosage: 40 MG
  3. ALPRAZOLAM. [Concomitant]
     Active Substance: ALPRAZOLAM
     Dosage: 0.5 UNK, 1X/DAY
  4. SOMA [Concomitant]
     Active Substance: CARISOPRODOL
     Dosage: 1 DOSAGE UNITS, 1X/DAY
  5. XALATAN [Concomitant]
     Active Substance: LATANOPROST
  6. OXYCODONE ACETAMINOPHEN [Concomitant]
     Active Substance: ACETAMINOPHEN\OXYCODONE HYDROCHLORIDE
     Dosage: 0.5 DOSAGE UNITS, AS NEEDED TO MAXIMUM OF 2/DAY

REACTIONS (4)
  - Papillary thyroid cancer [Recovering/Resolving]
  - Throat tightness [Recovered/Resolved]
  - Vocal cord paralysis [Recovered/Resolved]
  - Dyspnoea [Recovered/Resolved]

NARRATIVE: CASE EVENT DATE: 20170727
